FAERS Safety Report 16351389 (Version 3)
Quarter: 2019Q3

REPORT INFORMATION
  Report Type: Report from Study
  Country: CA (occurrence: CA)
  Receive Date: 20190524
  Receipt Date: 20190701
  Transmission Date: 20191004
  Serious: Yes (Hospitalization, Other)
  Sender: FDA-Public Use
  Company Number: CA-SAMSUNG BIOEPIS-SB-2019-10897

PATIENT
  Age: 44 Year
  Sex: Female
  Weight: 92 kg

DRUGS (4)
  1. GRAVOL [Concomitant]
     Active Substance: DIMENHYDRINATE
     Indication: PRODUCT USED FOR UNKNOWN INDICATION
     Route: 048
  2. RENFLEXIS [Suspect]
     Active Substance: INFLIXIMAB-ABDA
     Indication: ANKYLOSING SPONDYLITIS
     Route: 042
     Dates: start: 20190429
  3. BENADRYL [Concomitant]
     Active Substance: DIPHENHYDRAMINE HYDROCHLORIDE
     Indication: PRODUCT USED FOR UNKNOWN INDICATION
     Route: 042
  4. TYLENOL [Concomitant]
     Active Substance: ACETAMINOPHEN
     Indication: PRODUCT USED FOR UNKNOWN INDICATION
     Route: 048

REACTIONS (33)
  - Back pain [Unknown]
  - Erythema [Unknown]
  - Vomiting [Unknown]
  - Swelling face [Unknown]
  - Oxygen saturation decreased [Unknown]
  - Chromaturia [Unknown]
  - Asthenia [Unknown]
  - Ankylosing spondylitis [Unknown]
  - Oropharyngeal discomfort [Unknown]
  - Gait disturbance [Unknown]
  - Somnolence [Unknown]
  - Viral infection [Unknown]
  - Chest pain [Not Recovered/Not Resolved]
  - Chest discomfort [Unknown]
  - Infusion related reaction [Unknown]
  - Pain [Unknown]
  - Abdominal pain upper [Not Recovered/Not Resolved]
  - Hyperhidrosis [Unknown]
  - Dyspnoea [Unknown]
  - Insomnia [Unknown]
  - Hypotension [Recovering/Resolving]
  - Aphonia [Unknown]
  - Asthma [Unknown]
  - Hypersensitivity [Unknown]
  - Malaise [Unknown]
  - Diarrhoea [Unknown]
  - Fatigue [Not Recovered/Not Resolved]
  - Cyanosis [Unknown]
  - Abdominal discomfort [Unknown]
  - Inflammatory marker increased [Unknown]
  - Cardiac disorder [Unknown]
  - Inflammation [Unknown]
  - Flushing [Unknown]

NARRATIVE: CASE EVENT DATE: 20190429
